FAERS Safety Report 15323716 (Version 3)
Quarter: 2018Q3

REPORT INFORMATION
  Report Type: Report from Study
  Country: None (occurrence: PL)
  Receive Date: 20180828
  Receipt Date: 20180914
  Transmission Date: 20181010
  Serious: Yes (Death)
  Sender: FDA-Public Use
  Company Number: PL-ABBVIE-18S-129-2465660-00

PATIENT
  Age: 70 Year
  Sex: Male
  Weight: 69 kg

DRUGS (4)
  1. PRAZOL [Concomitant]
     Indication: PROPHYLAXIS
     Route: 048
     Dates: end: 20180813
  2. DUODOPA [Suspect]
     Active Substance: CARBIDOPA\LEVODOPA
     Indication: PRODUCT USED FOR UNKNOWN INDICATION
     Route: 050
     Dates: start: 2008, end: 20180813
  3. ZOCOR [Concomitant]
     Active Substance: SIMVASTATIN
     Indication: HYPERLIPIDAEMIA
     Route: 048
     Dates: end: 20180813
  4. BISOCARD [Concomitant]
     Active Substance: BISOPROLOL
     Indication: MYOCARDIAL ISCHAEMIA
     Dates: end: 20180813

REACTIONS (2)
  - Respiratory failure [Fatal]
  - Dyspnoea [Fatal]

NARRATIVE: CASE EVENT DATE: 20180813
